FAERS Safety Report 7176590-5 (Version None)
Quarter: 2010Q4

REPORT INFORMATION
  Report Type: 
  Country: None (occurrence: None)
  Receive Date: 20101220
  Receipt Date: 20101215
  Transmission Date: 20110411
  Serious: Yes (Other)
  Sender: FDA-Public Use
  Company Number: US-PFIZER INC-2010173468

PATIENT

DRUGS (2)
  1. SUTENT [Suspect]
     Indication: RENAL CELL CARCINOMA
     Dosage: UNK
  2. ZOMETA [Suspect]
     Dosage: UNK

REACTIONS (1)
  - CREATININE RENAL CLEARANCE INCREASED [None]
